FAERS Safety Report 7650787-X (Version None)
Quarter: 2011Q3

REPORT INFORMATION
  Report Type: 
  Country: None (occurrence: None)
  Receive Date: 20110802
  Receipt Date: 20110729
  Transmission Date: 20111222
  Serious: Yes (Death, Hospitalization)
  Sender: FDA-Public Use
  Company Number: CA-MERCK-1009USA01133

PATIENT
  Sex: Female

DRUGS (1)
  1. SINEMET CR [Suspect]
     Route: 048
     Dates: start: 20100101

REACTIONS (5)
  - WRONG TECHNIQUE IN DRUG USAGE PROCESS [None]
  - CATATONIA [None]
  - OVERDOSE [None]
  - DEATH [None]
  - TRAUMATIC LUNG INJURY [None]
